FAERS Safety Report 8075979-X (Version None)
Quarter: 2012Q1

REPORT INFORMATION
  Report Type: 
  Country: None (occurrence: None)
  Receive Date: 20120127
  Receipt Date: 20110124
  Transmission Date: 20120608
  Serious: No
  Sender: FDA-Public Use
  Company Number: US-GLAXOSMITHKLINE-A0909603A

PATIENT
  Age: 56 Year
  Sex: Female
  Weight: 76.8 kg

DRUGS (6)
  1. ATIVAN [Concomitant]
     Dosage: .5MG THREE TIMES PER DAY
     Route: 048
  2. WELLBUTRIN [Suspect]
     Indication: DEPRESSION
     Route: 048
  3. LYRICA [Concomitant]
     Dosage: 75MG TWICE PER DAY
  4. CYMBALTA [Concomitant]
  5. SIMVASTATIN [Concomitant]
     Indication: BLOOD CHOLESTEROL INCREASED
     Dosage: 40MG PER DAY
     Route: 048
  6. HYDROCODONE [Concomitant]
     Indication: PAIN
     Dosage: 7.5MG TWICE PER DAY
     Route: 048

REACTIONS (3)
  - SENSATION OF HEAVINESS [None]
  - ALOPECIA [None]
  - FATIGUE [None]
